FAERS Safety Report 5162506-X (Version None)
Quarter: 2006Q4

REPORT INFORMATION
  Report Type: 
  Country: None (occurrence: None)
  Receive Date: 20061127
  Receipt Date: 20061127
  Transmission Date: 20070319
  Serious: Yes (Hospitalization)
  Sender: FDA-Public Use
  Company Number: None

PATIENT
  Sex: Male
  Weight: 2.89 kg

DRUGS (2)
  1. LEXAPRO [Suspect]
     Indication: DEPRESSION
     Dosage: 30 MG DAILY PO
     Route: 048
     Dates: start: 20060126, end: 20061026
  2. LEXAPRO [Suspect]

REACTIONS (9)
  - APGAR SCORE LOW [None]
  - CAESAREAN SECTION [None]
  - DRUG EXPOSURE DURING PREGNANCY [None]
  - HYPOGLYCAEMIA NEONATAL [None]
  - METABOLIC ACIDOSIS [None]
  - MUSCLE DISORDER [None]
  - NEONATAL DISORDER [None]
  - PROLONGED LABOUR [None]
  - RESPIRATORY DISORDER NEONATAL [None]
